FAERS Safety Report 15287406 (Version 3)
Quarter: 2018Q3

REPORT INFORMATION
  Report Type: Spontaneous
  Country: US (occurrence: US)
  Receive Date: 20180817
  Receipt Date: 20180829
  Transmission Date: 20181010
  Serious: Yes (Hospitalization, Other)
  Sender: FDA-Public Use
  Company Number: US-TESARO INC.-TS50-00356-2018USA

PATIENT
  Sex: Female

DRUGS (3)
  1. RUCAPARIB [Suspect]
     Active Substance: RUCAPARIB
     Indication: OVARIAN CANCER
     Route: 048
     Dates: start: 20180502
  2. VARUBI [Suspect]
     Active Substance: ROLAPITANT
     Indication: VOMITING
  3. VARUBI [Suspect]
     Active Substance: ROLAPITANT
     Indication: NAUSEA
     Dosage: 180 MG 1?2 HOURS BEFORE CHEMO
     Route: 048
     Dates: start: 20180602

REACTIONS (6)
  - Blood disorder [Unknown]
  - Fall [Not Recovered/Not Resolved]
  - Malaise [Unknown]
  - Lumbar vertebral fracture [Not Recovered/Not Resolved]
  - Platelet count decreased [Not Recovered/Not Resolved]
  - Nausea [Not Recovered/Not Resolved]
